FAERS Safety Report 10140020 (Version 1)
Quarter: 2014Q2

REPORT INFORMATION
  Report Type: Spontaneous
  Country: JP (occurrence: JP)
  Receive Date: 20140429
  Receipt Date: 20140429
  Transmission Date: 20141212
  Serious: Yes (Hospitalization, Other)
  Sender: FDA-Public Use
  Company Number: JP-WATSON-2014-08192

PATIENT
  Age: 24 Year
  Sex: Female

DRUGS (2)
  1. AMPICILLIN (UNKNOWN) [Suspect]
     Indication: OROPHARYNGEAL PAIN
     Dosage: UNK
     Route: 065
  2. AMPICILLIN (UNKNOWN) [Suspect]
     Indication: LYMPHADENOPATHY

REACTIONS (2)
  - Rash maculo-papular [Recovered/Resolved]
  - Eyelid oedema [Unknown]
